FAERS Safety Report 8320349-X (Version None)
Quarter: 2012Q2

REPORT INFORMATION
  Report Type: 
  Country: None (occurrence: None)
  Receive Date: 20120426
  Receipt Date: 20120426
  Transmission Date: 20120825
  Serious: Yes (Disabling)
  Sender: FDA-Public Use
  Company Number: None

PATIENT
  Sex: Female
  Weight: 104.3273 kg

DRUGS (1)
  1. MYDRIACYL [Suspect]
     Indication: OPHTHALMOLOGIC TREATMENT
     Dosage: 3 DROPS 10 MIN, 1 MIN
     Dates: start: 20100819

REACTIONS (1)
  - MACULAR HOLE [None]
